FAERS Safety Report 16057382 (Version 3)
Quarter: 2020Q2

REPORT INFORMATION
  Report Type: Spontaneous
  Country: US (occurrence: US)
  Receive Date: 20190311
  Receipt Date: 20200604
  Transmission Date: 20200713
  Serious: No
  Sender: FDA-Public Use
  Company Number: US-PFIZER INC-2019022141

PATIENT
  Age: 61 Year
  Sex: Female

DRUGS (2)
  1. XELJANZ [Suspect]
     Active Substance: TOFACITINIB CITRATE
     Indication: SJOGREN^S SYNDROME
     Dosage: 5 MG, UNK
  2. XELJANZ [Suspect]
     Active Substance: TOFACITINIB CITRATE
     Dosage: 10 MG, DAILY (5MG 2 TABLETS DAILY)

REACTIONS (5)
  - Feeling abnormal [Unknown]
  - Product use in unapproved indication [Unknown]
  - Influenza [Unknown]
  - Off label use [Unknown]
  - Osteoporosis [Unknown]
